FAERS Safety Report 24961133 (Version 2)
Quarter: 2025Q2

REPORT INFORMATION
  Report Type: Spontaneous
  Country: US (occurrence: US)
  Receive Date: 20250212
  Receipt Date: 20250421
  Transmission Date: 20250717
  Serious: Yes (Other)
  Sender: JOHNSON AND JOHNSON
  Company Number: US-JNJFOC-20250210811

PATIENT

DRUGS (6)
  1. STELARA [Suspect]
     Active Substance: USTEKINUMAB
     Indication: Crohn^s disease
     Route: 065
     Dates: start: 20160101
  2. ESOMEPRAZOLE [Concomitant]
     Active Substance: ESOMEPRAZOLE
     Indication: Crohn^s disease
     Dates: start: 20240112
  3. FAMOTIDINE [Concomitant]
     Active Substance: FAMOTIDINE
     Indication: Crohn^s disease
     Dates: start: 20240112
  4. HYOSCYAMINE [Concomitant]
     Active Substance: HYOSCYAMINE
     Indication: Crohn^s disease
     Dates: start: 20240112
  5. LEXAPRO [Concomitant]
     Active Substance: ESCITALOPRAM OXALATE
     Indication: Anxiety
     Dates: start: 20220101
  6. BUPROPION [Concomitant]
     Active Substance: BUPROPION
     Indication: Anxiety
     Dates: start: 20220101

REACTIONS (4)
  - Surgery [Unknown]
  - Rubella [Unknown]
  - Off label use [Unknown]
  - Inappropriate schedule of product administration [Unknown]
